FAERS Safety Report 14492376 (Version 2)
Quarter: 2018Q1

REPORT INFORMATION
  Report Type: Spontaneous
  Country: NL (occurrence: NL)
  Receive Date: 20180206
  Receipt Date: 20180216
  Transmission Date: 20180509
  Serious: Yes (Death)
  Sender: FDA-Public Use
  Company Number: NL-ACTELION-A-CH2018-166636

PATIENT
  Age: 29 Year
  Sex: Male

DRUGS (4)
  1. TRACLEER [Suspect]
     Active Substance: BOSENTAN
     Dosage: 125 MG, BID
     Route: 048
     Dates: start: 201712, end: 20180118
  2. TRACLEER [Suspect]
     Active Substance: BOSENTAN
     Indication: SKIN ULCER
     Dosage: 125 MG, BID
     Route: 048
     Dates: start: 2011
  3. ADALAT [Concomitant]
     Active Substance: NIFEDIPINE
     Indication: RAYNAUD^S PHENOMENON
     Dosage: 30 MG, OD
     Route: 048
     Dates: start: 20180104
  4. TRACLEER [Suspect]
     Active Substance: BOSENTAN
     Dosage: 125 MG, BID
     Route: 048
     Dates: start: 20150511

REACTIONS (1)
  - Death [Fatal]

NARRATIVE: CASE EVENT DATE: 20180118
